FAERS Safety Report 21660504 (Version 2)
Quarter: 2023Q1

REPORT INFORMATION
  Report Type: Spontaneous
  Country: IL (occurrence: IL)
  Receive Date: 20221130
  Receipt Date: 20230302
  Transmission Date: 20230418
  Serious: Yes (Death, Hospitalization, Other)
  Sender: FDA-Public Use
  Company Number: IL-BRISTOL-MYERS SQUIBB COMPANY-2022-144873

PATIENT
  Age: 71 Year
  Sex: Male

DRUGS (2)
  1. NIVOLUMAB [Suspect]
     Active Substance: NIVOLUMAB
     Indication: Non-small cell lung cancer
     Dosage: DOSE : NIVO: 360MG, IPI: 1MG/K;     FREQ : NIVO: Q3W, IPI: Q6W
     Route: 042
  2. IPILIMUMAB [Suspect]
     Active Substance: IPILIMUMAB
     Indication: Non-small cell lung cancer
     Dosage: DOSE : NIVO: 360MG, IPI: 1MG/K;     FREQ : NIVO: Q3W, IPI: Q6W
     Route: 042

REACTIONS (3)
  - Hepatic enzyme increased [Not Recovered/Not Resolved]
  - Capillary leak syndrome [Fatal]
  - Intentional product use issue [Unknown]
